FAERS Safety Report 24397103 (Version 2)
Quarter: 2024Q4

REPORT INFORMATION
  Report Type: Spontaneous
  Country: FR (occurrence: FR)
  Receive Date: 20241004
  Receipt Date: 20241014
  Transmission Date: 20250115
  Serious: Yes (Hospitalization)
  Sender: FRESENIUS KABI
  Company Number: None

PATIENT
  Age: 72 Year
  Sex: Female
  Weight: 101 kg

DRUGS (2)
  1. PEGFILGRASTIM [Suspect]
     Active Substance: PEGFILGRASTIM
     Indication: Blood disorder prophylaxis
     Dosage: 6 MG, CYCLIC?DOSAGE FORM: INJECTION
     Dates: end: 20240624
  2. ENHERTU [Suspect]
     Active Substance: FAM-TRASTUZUMAB DERUXTECAN-NXKI
     Indication: Breast cancer
     Dosage: 5.2 MG/KG, CYCLIC?DOSAGE FORM: POWDER FOR SOLUTION FOR INFUSION?ROA: INTRAVENOUS
     Dates: start: 20240619, end: 20240619

REACTIONS (3)
  - Diarrhoea [Recovering/Resolving]
  - Incorrect dose administered [Unknown]
  - Intentional product use issue [Unknown]

NARRATIVE: CASE EVENT DATE: 20240619
